FAERS Safety Report 16003798 (Version 1)
Quarter: 2019Q1

REPORT INFORMATION
  Report Type: Report from Study
  Country: ES (occurrence: ES)
  Receive Date: 20190226
  Receipt Date: 20190226
  Transmission Date: 20190418
  Serious: Yes (Hospitalization)
  Sender: FDA-Public Use
  Company Number: ES-ACCORD-109052

PATIENT
  Age: 63 Year
  Sex: Male
  Weight: 74 kg

DRUGS (4)
  1. FUROSEMIDE. [Suspect]
     Active Substance: FUROSEMIDE
     Indication: PRODUCT USED FOR UNKNOWN INDICATION
     Route: 048
     Dates: start: 20151215, end: 20151220
  2. CEFTRIAXONE/CEFTRIAXONE SODIUM [Concomitant]
     Indication: PNEUMONIA
     Dosage: 1 GR, 1 TIME A DAY
     Route: 042
     Dates: start: 20151123, end: 20151207
  3. PRASUGREL. [Suspect]
     Active Substance: PRASUGREL
     Indication: CARDIOVASCULAR EVENT PROPHYLAXIS
     Dosage: 10 MG, ONCE A DAY
     Route: 048
     Dates: start: 20151215, end: 20151221
  4. VANCOMYCIN [Concomitant]
     Active Substance: VANCOMYCIN
     Indication: PNEUMONIA
     Dosage: 1 GR, 1 TIME A DAY
     Route: 042
     Dates: start: 20151130, end: 20151221

REACTIONS (1)
  - Drug reaction with eosinophilia and systemic symptoms [Recovered/Resolved]

NARRATIVE: CASE EVENT DATE: 20151217
